FAERS Safety Report 6977119-4 (Version None)
Quarter: 2010Q3

REPORT INFORMATION
  Report Type: 
  Country: None (occurrence: None)
  Receive Date: 20100910
  Receipt Date: 20100831
  Transmission Date: 20110219
  Serious: Yes (Hospitalization)
  Sender: FDA-Public Use
  Company Number: DE-WYE-G06603610

PATIENT
  Age: 65 Year
  Sex: Male
  Weight: 86 kg

DRUGS (4)
  1. VENLAFAXINE HCL [Interacting]
     Indication: DEPRESSION
     Route: 048
  2. KORODIN [Interacting]
     Indication: CARDIAC FAILURE
     Dosage: 10 DROPS 3 TIMES PER DAY STARTING FROM UNKN DATE, DISCONTINUED ON 14-SEP-2008
     Route: 048
  3. BISOPROLOL [Concomitant]
     Indication: HYPERTENSION
     Route: 048
  4. EUNERPAN [Suspect]
     Indication: ALCOHOLISM
     Route: 048

REACTIONS (2)
  - DRUG INTERACTION [None]
  - SYNCOPE [None]
